FAERS Safety Report 4302175-1 (Version None)
Quarter: 2004Q1

REPORT INFORMATION
  Report Type: 
  Country: None (occurrence: None)
  Receive Date: 20040220
  Receipt Date: 20040206
  Transmission Date: 20041129
  Serious: Yes (Hospitalization)
  Sender: FDA-Public Use
  Company Number: 2004007841

PATIENT
  Age: 80 Year
  Sex: Male

DRUGS (7)
  1. LITHIUM CARBONATE [Suspect]
     Indication: BIPOLAR I DISORDER
     Dosage: 450 MG
  2. KETOROLAC (KETOROLAC) [Suspect]
     Indication: ARTHRALGIA
     Dosage: 30 MG
  3. ACETYLSALICYLIC ACID SRT [Concomitant]
  4. DIGOXIN [Concomitant]
  5. HALOPERIDOL [Concomitant]
  6. PROCYCLIDINE HYDROCHLORIDE 2MG TAB [Concomitant]
  7. CLONAZEPAM [Concomitant]

REACTIONS (7)
  - DEHYDRATION [None]
  - DIABETES INSIPIDUS [None]
  - DRUG LEVEL INCREASED [None]
  - DUODENAL ULCER [None]
  - HYPOVOLAEMIA [None]
  - RENAL FAILURE [None]
  - VOMITING [None]
